FAERS Safety Report 7731470-9 (Version None)
Quarter: 2011Q3

REPORT INFORMATION
  Report Type: 
  Country: None (occurrence: None)
  Receive Date: 20110906
  Receipt Date: 20110602
  Transmission Date: 20111222
  Serious: No
  Sender: FDA-Public Use
  Company Number: US-AMGEN-USASP2011028499

PATIENT
  Sex: Female

DRUGS (6)
  1. PRAVASTATIN [Concomitant]
  2. VITAMIN D [Concomitant]
  3. DILTIAZEM [Concomitant]
  4. ASPIRIN [Concomitant]
  5. PROLIA [Suspect]
     Indication: OSTEOPOROSIS POSTMENOPAUSAL
     Dosage: 60 MG, Q6MO
     Dates: start: 20110501
  6. FOLIC ACID [Concomitant]

REACTIONS (3)
  - HEADACHE [None]
  - JOINT SWELLING [None]
  - OEDEMA PERIPHERAL [None]
